FAERS Safety Report 7338163-0 (Version None)
Quarter: 2011Q1

REPORT INFORMATION
  Report Type: 
  Country: None (occurrence: None)
  Receive Date: 20110308
  Receipt Date: 20110223
  Transmission Date: 20110831
  Serious: Yes (Hospitalization)
  Sender: FDA-Public Use
  Company Number: FR-ELI_LILLY_AND_COMPANY-FR201103000854

PATIENT
  Sex: Female

DRUGS (10)
  1. CYMBALTA [Suspect]
     Indication: BIPOLAR I DISORDER
     Dosage: 60 MG, DAILY (1/D)
     Route: 048
     Dates: end: 20100414
  2. XANAX [Concomitant]
     Dosage: 0.5 MG, 3/D
     Dates: start: 20100409
  3. SULFARLEM [Concomitant]
  4. LOXAPINE HCL [Concomitant]
     Indication: BIPOLAR I DISORDER
     Dosage: 2 D/F, ONCE
     Route: 030
     Dates: start: 20100413
  5. LEPTICUR [Concomitant]
     Dosage: 30 MG, DAILY (1/D)
     Dates: start: 20100416
  6. DEPAMIDE [Concomitant]
     Dosage: 300 MG, 2/D
  7. DEPAMIDE [Concomitant]
     Dosage: UNK, UNKNOWN
     Dates: start: 20100416
  8. LEPTICUR [Concomitant]
     Dosage: 60 MG, DAILY (1/D)
     Dates: end: 20100414
  9. CLOPIXOL [Concomitant]
     Indication: BIPOLAR I DISORDER
     Dosage: EVERY 2 WEEKS
     Route: 030
  10. HYDROXYZINE [Concomitant]
     Dosage: 50 MG, DAILY (1/D)
     Route: 048
     Dates: end: 20100414

REACTIONS (3)
  - TREMOR [None]
  - PYREXIA [None]
  - TACHYCARDIA [None]
